FAERS Safety Report 23760660 (Version 1)
Quarter: 2024Q2

REPORT INFORMATION
  Report Type: Spontaneous
  Country: US (occurrence: US)
  Receive Date: 20240419
  Receipt Date: 20240419
  Transmission Date: 20240716
  Serious: Yes (Other)
  Sender: FDA-Public Use
  Company Number: HIKM2402343

PATIENT
  Sex: Female

DRUGS (1)
  1. BUTORPHANOL TARTRATE [Suspect]
     Active Substance: BUTORPHANOL TARTRATE
     Indication: Headache
     Dosage: UNK;1 TO 2 SPRAYS PRN, 1 TO 2 TIMES PER DAY
     Route: 045

REACTIONS (4)
  - Product use issue [Unknown]
  - Malaise [Unknown]
  - Loss of consciousness [Unknown]
  - Seizure [Unknown]
